FAERS Safety Report 8543502-9 (Version None)
Quarter: 2012Q3

REPORT INFORMATION
  Report Type: 
  Country: None (occurrence: None)
  Receive Date: 20120727
  Receipt Date: 20120724
  Transmission Date: 20120928
  Serious: Yes (Other)
  Sender: FDA-Public Use
  Company Number: PHHY2012AU064150

PATIENT
  Age: 75 Year
  Sex: Female

DRUGS (3)
  1. ZOLEDRONOC ACID [Suspect]
     Route: 042
  2. ZOLEDRONOC ACID [Suspect]
     Route: 042
  3. ZOLEDRONOC ACID [Suspect]
     Route: 042

REACTIONS (3)
  - FALL [None]
  - FRACTURE [None]
  - CLAVICLE FRACTURE [None]
